FAERS Safety Report 5425274-X (Version None)
Quarter: 2007Q3

REPORT INFORMATION
  Report Type: 
  Country: None (occurrence: None)
  Receive Date: 20070824
  Receipt Date: 20070814
  Transmission Date: 20080115
  Serious: Yes (Other)
  Sender: FDA-Public Use
  Company Number: US-PFIZER INC-2007052265

PATIENT
  Sex: Female
  Weight: 86.4 kg

DRUGS (5)
  1. CHANTIX [Suspect]
     Indication: SMOKING CESSATION THERAPY
     Dosage: TEXT:EVERY DAY
  2. PREVACID [Concomitant]
  3. ALBUTEROL [Concomitant]
  4. ADVAIR DISKUS 100/50 [Concomitant]
  5. ATIVAN [Concomitant]
     Indication: ANXIETY

REACTIONS (5)
  - ANXIETY [None]
  - MEMORY IMPAIRMENT [None]
  - PANIC ATTACK [None]
  - SLEEP DISORDER [None]
  - UNRESPONSIVE TO STIMULI [None]
